FAERS Safety Report 8362657-2 (Version None)
Quarter: 2012Q2

REPORT INFORMATION
  Report Type: 
  Country: None (occurrence: None)
  Receive Date: 20120516
  Receipt Date: 20120514
  Transmission Date: 20120825
  Serious: Yes (Other)
  Sender: FDA-Public Use
  Company Number: US-PFIZER INC-2012117183

PATIENT
  Sex: Male
  Weight: 79.365 kg

DRUGS (3)
  1. ZOLOFT [Concomitant]
     Indication: BIPOLAR DISORDER
     Dosage: UNK
  2. CHANTIX [Suspect]
     Indication: SMOKING CESSATION THERAPY
     Dosage: 0.5 MG, 1X/DAY
     Route: 048
     Dates: start: 20120301, end: 20120101
  3. CHANTIX [Suspect]
     Dosage: 1 MG, 2X/DAY
     Route: 048
     Dates: start: 20120101, end: 20120501

REACTIONS (3)
  - DEPRESSION [None]
  - IRRITABILITY [None]
  - MOOD SWINGS [None]
